FAERS Safety Report 8319548-2 (Version None)
Quarter: 2012Q2

REPORT INFORMATION
  Report Type: 
  Country: None (occurrence: None)
  Receive Date: 20120427
  Receipt Date: 20120417
  Transmission Date: 20120825
  Serious: Yes (Other)
  Sender: FDA-Public Use
  Company Number: PHHY2012IT033485

PATIENT

DRUGS (1)
  1. CYCLOSPORINE [Suspect]
     Indication: LIVER DISORDER
     Dosage: UNK UKN, UNK

REACTIONS (2)
  - GINGIVAL ULCERATION [None]
  - GINGIVAL PAIN [None]
